FAERS Safety Report 6447600-5 (Version None)
Quarter: 2009Q4

REPORT INFORMATION
  Report Type: 
  Country: None (occurrence: None)
  Receive Date: 20091119
  Receipt Date: 20090819
  Transmission Date: 20100525
  Serious: Yes (Other)
  Sender: FDA-Public Use
  Company Number: US-AMGEN-KDL317117

PATIENT
  Sex: Female
  Weight: 77.2 kg

DRUGS (9)
  1. ENBREL [Suspect]
     Indication: RHEUMATOID ARTHRITIS
     Route: 058
     Dates: start: 20081021, end: 20090223
  2. SUDAFED 12 HOUR [Suspect]
  3. PLAQUENIL [Concomitant]
     Dates: start: 20040126
  4. MELOXICAM [Concomitant]
     Dates: start: 20050214
  5. TRAMADOL [Concomitant]
     Dates: start: 20080311
  6. FLEXERIL [Concomitant]
     Dates: start: 20040301
  7. VOLTAREN [Concomitant]
     Dates: start: 20090428
  8. IBUPROFEN [Concomitant]
     Dates: start: 20090701
  9. DECADRON [Concomitant]

REACTIONS (8)
  - CHEST DISCOMFORT [None]
  - DYSPNOEA [None]
  - FEELING HOT [None]
  - HEART RATE INCREASED [None]
  - HYPERHIDROSIS [None]
  - NASOPHARYNGITIS [None]
  - PARAESTHESIA [None]
  - THROAT TIGHTNESS [None]
